FAERS Safety Report 7394292-7 (Version None)
Quarter: 2011Q2

REPORT INFORMATION
  Report Type: 
  Country: None (occurrence: None)
  Receive Date: 20110405
  Receipt Date: 20110325
  Transmission Date: 20111010
  Serious: Yes (Other)
  Sender: FDA-Public Use
  Company Number: JP-ROCHE-604415

PATIENT
  Age: 47 Year
  Sex: Male

DRUGS (23)
  1. TOCILIZUMAB [Suspect]
     Route: 041
     Dates: start: 20080801, end: 20080801
  2. TOCILIZUMAB [Suspect]
     Route: 041
     Dates: start: 20090306, end: 20090306
  3. FOLIAMIN [Concomitant]
     Dosage: DOSE FORM: PERORAL AGENT
     Route: 048
  4. TOCILIZUMAB [Suspect]
     Route: 041
     Dates: start: 20080829, end: 20080829
  5. TOCILIZUMAB [Suspect]
     Route: 041
     Dates: start: 20090529, end: 20090529
  6. TOCILIZUMAB [Suspect]
     Route: 041
     Dates: start: 20090626, end: 20090626
  7. METHOTREXATE [Concomitant]
     Dosage: DOSE FORM: PERORAL AGENT
     Route: 048
  8. MOBIC [Concomitant]
     Route: 048
  9. TOCILIZUMAB [Suspect]
     Route: 041
     Dates: start: 20080926, end: 20080926
  10. TOCILIZUMAB [Suspect]
     Route: 041
     Dates: start: 20081226, end: 20081226
  11. PREDNISOLONE [Concomitant]
     Route: 048
     Dates: start: 20081217
  12. TOCILIZUMAB [Suspect]
     Route: 041
     Dates: start: 20081023, end: 20081023
  13. TOCILIZUMAB [Suspect]
     Route: 041
     Dates: start: 20090123, end: 20090123
  14. TOCILIZUMAB [Suspect]
     Route: 041
     Dates: start: 20090501, end: 20090501
  15. PREDNISOLONE [Concomitant]
     Route: 048
     Dates: end: 20080925
  16. TOCILIZUMAB [Suspect]
     Route: 041
     Dates: start: 20090403, end: 20090403
  17. PREDNISOLONE [Concomitant]
     Route: 048
     Dates: start: 20080926
  18. ETODOLAC [Concomitant]
     Route: 048
  19. TOCILIZUMAB [Suspect]
     Indication: RHEUMATOID ARTHRITIS
     Route: 041
     Dates: start: 20080704, end: 20080704
  20. TOCILIZUMAB [Suspect]
     Route: 041
     Dates: start: 20081121, end: 20081121
  21. PREDNISOLONE [Concomitant]
     Route: 048
     Dates: end: 20080925
  22. GASTER D [Concomitant]
     Route: 048
  23. CYTOTEC [Concomitant]
     Route: 050

REACTIONS (3)
  - PLATELET COUNT DECREASED [None]
  - VIITH NERVE PARALYSIS [None]
  - LIVER ABSCESS [None]
